FAERS Safety Report 9299363 (Version 2)
Quarter: 2013Q4

REPORT INFORMATION
  Report Type: Spontaneous
  Country: US (occurrence: US)
  Receive Date: 20130520
  Receipt Date: 20131105
  Transmission Date: 20140711
  Serious: Yes (Hospitalization, Other)
  Sender: FDA-Public Use
  Company Number: US-B.I. PHARMACEUTICALS,INC./RIDGEFIELD-2013-BI-13753BP

PATIENT
  Age: 75 Year
  Sex: Male
  Weight: 87.09 kg

DRUGS (8)
  1. PRADAXA [Suspect]
     Indication: ANTICOAGULANT THERAPY
     Dosage: 300 MG
     Route: 048
     Dates: start: 20110614, end: 20110617
  2. PRADAXA [Suspect]
     Indication: ATRIAL FIBRILLATION
  3. ASPIRIN [Suspect]
     Dosage: 81 MG
     Route: 048
     Dates: end: 20110617
  4. CICLOPIROX [Concomitant]
     Route: 061
  5. METOPROLOL [Concomitant]
     Indication: HYPERTENSION
     Dosage: 50 MG
     Route: 048
  6. DETROL-LA [Concomitant]
     Indication: BLADDER DISORDER
     Dosage: 4 MG
     Route: 048
  7. LIPITOR [Concomitant]
     Indication: HYPERLIPIDAEMIA
     Dosage: 4 MG
     Route: 048
  8. VICODIN [Concomitant]
     Indication: PAIN
     Route: 048

REACTIONS (3)
  - Cerebral haemorrhage [Unknown]
  - Coagulopathy [Unknown]
  - Hemianopia [Unknown]
